FAERS Safety Report 5090652-8 (Version None)
Quarter: 2006Q3

REPORT INFORMATION
  Report Type: 
  Country: None (occurrence: None)
  Receive Date: 20060823
  Receipt Date: 20060821
  Transmission Date: 20061208
  Serious: Yes (Other)
  Sender: FDA-Public Use
  Company Number: HQWYE937816AUG05

PATIENT
  Age: 65 Year
  Sex: Male

DRUGS (12)
  1. RAPAMUNE [Suspect]
     Indication: PROPHYLAXIS AGAINST TRANSPLANT REJECTION
     Dosage: 5 MG 1X PER 1 DAY, ORAL
     Route: 048
     Dates: start: 20041001
  2. MYCOPHENOLATE MOFETIL [Suspect]
     Indication: PROPHYLAXIS AGAINST TRANSPLANT REJECTION
     Dosage: 500 MG 2X PER 1 DAY, ORAL
     Route: 048
     Dates: start: 20041112
  3. PREDNISONE TAB [Suspect]
     Indication: PROPHYLAXIS AGAINST TRANSPLANT REJECTION
     Dosage: 10 MG 1X PER 1 DAY, ORAL
     Route: 048
     Dates: start: 20040902
  4. TOPROL-XL [Concomitant]
  5. PEPCID [Concomitant]
  6. CELEXA [Concomitant]
  7. COUMADIN [Concomitant]
  8. LOTENSIN [Concomitant]
  9. LIPITOR [Concomitant]
  10. ZETIA [Concomitant]
  11. BACTRIM [Concomitant]
  12. CLONIDINE [Concomitant]

REACTIONS (1)
  - PROSTATE CANCER [None]
